FAERS Safety Report 20988717 (Version 2)
Quarter: 2022Q2

REPORT INFORMATION
  Report Type: Spontaneous
  Country: US (occurrence: US)
  Receive Date: 20220621
  Receipt Date: 20220622
  Transmission Date: 20220720
  Serious: Yes (Other)
  Sender: FDA-Public Use
  Company Number: US-PFIZER INC-202200857081

PATIENT
  Age: 77 Year
  Sex: Female
  Weight: 63.05 kg

DRUGS (1)
  1. PAXLOVID [Suspect]
     Active Substance: NIRMATRELVIR\RITONAVIR
     Indication: COVID-19 treatment
     Dosage: UNK

REACTIONS (6)
  - Dysgeusia [Unknown]
  - Nausea [Unknown]
  - Abdominal distension [Unknown]
  - Illness [Unknown]
  - Hyperhidrosis [Unknown]
  - Diarrhoea [Unknown]
